FAERS Safety Report 4358323-0 (Version None)
Quarter: 2004Q2

REPORT INFORMATION
  Report Type: 
  Country: None (occurrence: None)
  Receive Date: 20040512
  Receipt Date: 20040512
  Transmission Date: 20050107
  Serious: Yes (Hospitalization)
  Sender: FDA-Public Use
  Company Number: None

PATIENT
  Age: 80 Year
  Sex: Female
  Weight: 69.4003 kg

DRUGS (1)
  1. IODINE [Suspect]
     Indication: CATHETERISATION CARDIAC

REACTIONS (1)
  - CONTRAST MEDIA REACTION [None]
